FAERS Safety Report 6805463-X (Version None)
Quarter: 2010Q2

REPORT INFORMATION
  Report Type: 
  Country: None (occurrence: None)
  Receive Date: 20100628
  Receipt Date: 20071204
  Transmission Date: 20101027
  Serious: No
  Sender: FDA-Public Use
  Company Number: US-PFIZER INC-2007102120

PATIENT
  Sex: Female
  Weight: 75 kg

DRUGS (7)
  1. XALATAN [Suspect]
     Indication: GLAUCOMA
     Dates: start: 20071203
  2. HYDROCHLOROTHIAZIDE [Concomitant]
  3. RANITIDINE [Concomitant]
  4. FLAXSEED OIL [Concomitant]
  5. DRUG, UNSPECIFIED [Concomitant]
  6. VITAMINS [Concomitant]
  7. ALPRAZOLAM [Concomitant]

REACTIONS (8)
  - ABDOMINAL DISCOMFORT [None]
  - DYSPNOEA [None]
  - EYE PAIN [None]
  - SINUS HEADACHE [None]
  - THROAT IRRITATION [None]
  - TONGUE COATED [None]
  - TONGUE DISCOLOURATION [None]
  - VISION BLURRED [None]
